FAERS Safety Report 10385670 (Version 3)
Quarter: 2014Q3

REPORT INFORMATION
  Report Type: Spontaneous
  Country: JP (occurrence: None)
  Receive Date: 20140812
  Receipt Date: 20140916
  Transmission Date: 20150326
  Serious: Yes (Hospitalization, Other)
  Sender: FDA-Public Use
  Company Number: 2014RN000038

PATIENT
  Age: 90 Year
  Sex: Male

DRUGS (6)
  1. ACYCLOVIR (ACYCLOVIR) TABLET [Suspect]
     Active Substance: ACYCLOVIR
     Indication: HERPES ZOSTER
     Route: 048
  2. MECOBALAMIN (MECOBALAMIN) [Concomitant]
  3. FRUSEMIDE (FUROSEMIDE) [Concomitant]
     Active Substance: FUROSEMIDE
  4. MEDIGOXIN (DIGOXIN) [Concomitant]
  5. ENALAPRIL (ENALAPRIL) [Concomitant]
     Active Substance: ENALAPRIL
  6. MINIPLANOR (ALLOPURINOL) [Concomitant]

REACTIONS (9)
  - Cardioactive drug level increased [None]
  - Altered state of consciousness [None]
  - Fluid intake reduced [None]
  - Activities of daily living impaired [None]
  - Decreased appetite [None]
  - Renal tubular disorder [None]
  - Blood potassium increased [None]
  - Fall [None]
  - Renal failure acute [None]
